FAERS Safety Report 6419818-9 (Version None)
Quarter: 2009Q4

REPORT INFORMATION
  Report Type: 
  Country: None (occurrence: None)
  Receive Date: 20091013
  Receipt Date: 20081014
  Transmission Date: 20100525
  Serious: Yes (Other)
  Sender: FDA-Public Use
  Company Number: 1000001035

PATIENT
  Age: 80 Year
  Sex: Female

DRUGS (11)
  1. LEXAPRO [Suspect]
     Indication: DEPRESSION
     Dosage: 5 MG (5 MG, 1 IN 1 D), ORAL
     Route: 048
     Dates: start: 20080918, end: 20080921
  2. LANTUS [Concomitant]
  3. REGULAR INSULIN [Concomitant]
  4. NPH INSULIN [Concomitant]
  5. SYNTHROID [Concomitant]
  6. LORAZEPAM [Concomitant]
  7. DARVOCET [Concomitant]
  8. MECLIZINE [Concomitant]
  9. MULTI-VITAMIN [Concomitant]
  10. SENOKOT [Concomitant]
  11. AVAPRO [Concomitant]

REACTIONS (10)
  - AMNESIA [None]
  - BLOOD PRESSURE INCREASED [None]
  - DIZZINESS [None]
  - DRY MOUTH [None]
  - DYSKINESIA [None]
  - FATIGUE [None]
  - HOT FLUSH [None]
  - HYPERHIDROSIS [None]
  - INSOMNIA [None]
  - TREMOR [None]
